FAERS Safety Report 9101597 (Version 2)
Quarter: 2013Q3

REPORT INFORMATION
  Report Type: Spontaneous
  Country: US (occurrence: US)
  Receive Date: 20130218
  Receipt Date: 20130808
  Transmission Date: 20140515
  Serious: Yes (Death)
  Sender: FDA-Public Use
  Company Number: US-COVIDIEN/TYCO HEALTHCARE/MALLINCKRODT-T201300505

PATIENT
  Age: 40 Year
  Sex: Female

DRUGS (4)
  1. ROXICODONE [Suspect]
     Dosage: UNK
     Route: 048
  2. METHADOSE [Suspect]
  3. DIAZEPAM [Suspect]
  4. ETHANOL [Suspect]

REACTIONS (2)
  - Drug abuse [Fatal]
  - Cardio-respiratory arrest [Fatal]
